FAERS Safety Report 6938856-0 (Version None)
Quarter: 2010Q3

REPORT INFORMATION
  Report Type: 
  Country: None (occurrence: None)
  Receive Date: 20100824
  Receipt Date: 20100816
  Transmission Date: 20110219
  Serious: Yes (Death, Other)
  Sender: FDA-Public Use
  Company Number: US-ROCHE-721006

PATIENT
  Age: 55 Year
  Sex: Male

DRUGS (10)
  1. GANCICLOVIR SODIUM [Suspect]
     Route: 042
     Dates: start: 20080201, end: 20080201
  2. GANCICLOVIR SODIUM [Suspect]
     Dosage: FROM MONDAY TO FRIDAY
     Route: 042
     Dates: start: 20080301, end: 20080301
  3. GANCICLOVIR SODIUM [Suspect]
     Route: 042
     Dates: start: 20080301, end: 20080401
  4. GANCICLOVIR SODIUM [Suspect]
     Dosage: FROM MONDAY THROUGH FRIDAY
     Route: 042
     Dates: start: 20080401, end: 20080501
  5. MYCOPHENOLATE MOFETIL [Suspect]
     Indication: PROPHYLAXIS AGAINST GRAFT VERSUS HOST DISEASE
     Route: 065
     Dates: start: 20080101
  6. CYCLOSPORINE [Suspect]
     Indication: PROPHYLAXIS AGAINST GRAFT VERSUS HOST DISEASE
     Route: 065
     Dates: start: 20080101
  7. FOSCARNET [Suspect]
     Indication: CYTOMEGALOVIRUS INFECTION
     Route: 042
     Dates: start: 20080501, end: 20080701
  8. PREDNISONE [Suspect]
     Indication: GRAFT VERSUS HOST DISEASE
     Route: 065
     Dates: start: 20080501
  9. FLUDARABINE [Concomitant]
     Dates: start: 20080101
  10. ANTI-THYMOCYTE GLOBULIN NOS [Concomitant]
     Dosage: OVER DAYS 4 AND 3 BEFORE TRANSPLANTATION.
     Dates: start: 20080101

REACTIONS (4)
  - CYTOMEGALOVIRUS INFECTION [None]
  - ENCEPHALITIS CYTOMEGALOVIRUS [None]
  - GRAFT VERSUS HOST DISEASE [None]
  - NEPHROPATHY TOXIC [None]
